FAERS Safety Report 17866964 (Version 2)
Quarter: 2025Q1

REPORT INFORMATION
  Report Type: Spontaneous
  Country: CA (occurrence: CA)
  Receive Date: 20200605
  Receipt Date: 20250227
  Transmission Date: 20250408
  Serious: Yes (Hospitalization, Other)
  Sender: SAMSUNG BIOEPIS
  Company Number: CA-SAMSUNG BIOEPIS-SB-2020-18743

PATIENT
  Age: 26 Year
  Sex: Male

DRUGS (5)
  1. INFLIXIMAB [Suspect]
     Active Substance: INFLIXIMAB
     Indication: Product used for unknown indication
     Route: 065
  2. INFLIXIMAB [Suspect]
     Active Substance: INFLIXIMAB
     Route: 065
  3. COUMADIN [Suspect]
     Active Substance: WARFARIN SODIUM
     Indication: Deep vein thrombosis
     Route: 065
  4. HYDROCORTISONE [Concomitant]
     Active Substance: HYDROCORTISONE
     Indication: Product used for unknown indication
     Route: 065
  5. DIVALPROEX SODIUM [Concomitant]
     Active Substance: DIVALPROEX SODIUM
     Indication: Product used for unknown indication
     Route: 065

REACTIONS (5)
  - Anaemia [Unknown]
  - Back pain [Unknown]
  - Colitis ulcerative [Unknown]
  - Rectal haemorrhage [Unknown]
  - Anticoagulation drug level above therapeutic [Unknown]
